FAERS Safety Report 19631582 (Version 1)
Quarter: 2021Q3

REPORT INFORMATION
  Report Type: Spontaneous
  Country: US (occurrence: US)
  Receive Date: 20210728
  Receipt Date: 20210728
  Transmission Date: 20211014
  Serious: No
  Sender: FDA-Public Use
  Company Number: US-CELGENEUS-USA-20210704125

PATIENT
  Sex: Male

DRUGS (6)
  1. POMALYST [Suspect]
     Active Substance: POMALIDOMIDE
     Dosage: 1?2MG
     Route: 048
     Dates: start: 201708
  2. POMALYST [Suspect]
     Active Substance: POMALIDOMIDE
     Dosage: 1 MILLIGRAM
     Route: 048
     Dates: start: 202012
  3. POMALYST [Suspect]
     Active Substance: POMALIDOMIDE
     Dosage: 1?2 MG
     Route: 048
     Dates: start: 201804
  4. POMALYST [Suspect]
     Active Substance: POMALIDOMIDE
     Dosage: 1?2 MG
     Route: 048
     Dates: start: 20201028
  5. POMALYST [Suspect]
     Active Substance: POMALIDOMIDE
     Indication: PLASMA CELL MYELOMA
     Dosage: 4 MILLIGRAM
     Route: 048
     Dates: start: 201701
  6. POMALYST [Suspect]
     Active Substance: POMALIDOMIDE
     Dosage: 2?4MG
     Route: 048
     Dates: start: 201703

REACTIONS (1)
  - Plasma cell myeloma [Unknown]
